FAERS Safety Report 24993378 (Version 1)
Quarter: 2025Q1

REPORT INFORMATION
  Report Type: Spontaneous
  Country: ES (occurrence: ES)
  Receive Date: 20250221
  Receipt Date: 20250221
  Transmission Date: 20250409
  Serious: Yes (Other)
  Sender: BIOGEN
  Company Number: None

PATIENT
  Age: 25 Year
  Sex: Female

DRUGS (1)
  1. TYSABRI [Suspect]
     Active Substance: NATALIZUMAB
     Indication: Multiple sclerosis
     Dosage: 1 VIAL OF 15 ML
     Route: 050
     Dates: start: 20200402

REACTIONS (1)
  - Immune-mediated gastritis [Not Recovered/Not Resolved]

NARRATIVE: CASE EVENT DATE: 20231225
